FAERS Safety Report 9350292 (Version 1)
Quarter: 2013Q2

REPORT INFORMATION
  Report Type: Spontaneous
  Country: US (occurrence: US)
  Receive Date: 20130617
  Receipt Date: 20130617
  Transmission Date: 20140414
  Serious: No
  Sender: FDA-Public Use
  Company Number: US-B.I. PHARMACEUTICALS,INC./RIDGEFIELD-2013-BI-16654BP

PATIENT
  Age: 58 Year
  Sex: Female
  Weight: 68 kg

DRUGS (8)
  1. SPIRIVA [Suspect]
     Indication: ASTHMA
     Dosage: 18 MCG
     Route: 055
     Dates: start: 20130405
  2. WELLBUTRIN [Concomitant]
     Indication: DEPRESSION
     Dosage: 300 MG
     Route: 048
  3. NORVASC [Concomitant]
     Dosage: 5 MG
     Route: 048
  4. PAXIL [Concomitant]
     Indication: DEPRESSION
     Dosage: 37.5 MG
     Route: 048
  5. RITALIN [Concomitant]
     Indication: ATTENTION DEFICIT/HYPERACTIVITY DISORDER
     Dosage: 30 MG
     Route: 048
  6. RITALIN [Concomitant]
     Dosage: 20 MG
     Route: 048
  7. FLOVENT [Concomitant]
     Indication: ASTHMA
     Dosage: 220 MCG
     Route: 055
  8. SINGULAIR [Concomitant]
     Indication: ASTHMA
     Dosage: 10 MG
     Route: 048

REACTIONS (1)
  - Diarrhoea [Not Recovered/Not Resolved]
